FAERS Safety Report 6062828-4 (Version None)
Quarter: 2009Q1

REPORT INFORMATION
  Report Type: 
  Country: None (occurrence: None)
  Receive Date: 20090203
  Receipt Date: 20090122
  Transmission Date: 20090719
  Serious: Yes (Other)
  Sender: FDA-Public Use
  Company Number: US-KINGPHARMUSA00001-K200801234

PATIENT
  Sex: Female
  Weight: 151 kg

DRUGS (4)
  1. CYTOMEL [Suspect]
     Indication: HYPOTHYROIDISM
     Dosage: 5-20 MCG QD, ORAL
     Dates: start: 20060101
  2. SYNTHROID [Concomitant]
     Indication: THYROID DISORDER
     Dosage: .075 MG, BID
     Dates: start: 19800101
  3. VITAMINS                           /90003601/ [Concomitant]
  4. COD LIVER OIL [Concomitant]

REACTIONS (43)
  - ABDOMINAL DISTENSION [None]
  - ABDOMINAL PAIN [None]
  - ABNORMAL DREAMS [None]
  - ANOREXIA [None]
  - ARTHRALGIA [None]
  - BACK PAIN [None]
  - BURNING SENSATION [None]
  - CHOKING [None]
  - CHROMATURIA [None]
  - COUGH [None]
  - DELUSION [None]
  - DYSPHAGIA [None]
  - DYSPNOEA [None]
  - FEELING ABNORMAL [None]
  - FLUID RETENTION [None]
  - GINGIVAL BLEEDING [None]
  - HEADACHE [None]
  - HORMONE LEVEL ABNORMAL [None]
  - HUNGER [None]
  - HYPOAESTHESIA [None]
  - INFLAMMATION [None]
  - LIVER DISORDER [None]
  - MALAISE [None]
  - MENTAL DISORDER [None]
  - MUCOSAL INFLAMMATION [None]
  - NECK PAIN [None]
  - NERVE COMPRESSION [None]
  - OEDEMA PERIPHERAL [None]
  - ORAL DISCOMFORT [None]
  - OROPHARYNGEAL PAIN [None]
  - PAIN IN EXTREMITY [None]
  - PALLOR [None]
  - PARANOIA [None]
  - PHARYNGEAL OEDEMA [None]
  - PLEURISY [None]
  - PREMATURE AGEING [None]
  - RECTAL HAEMORRHAGE [None]
  - SWELLING FACE [None]
  - VISION BLURRED [None]
  - WEIGHT DECREASED [None]
  - WEIGHT INCREASED [None]
  - WEIGHT LOSS POOR [None]
  - WHEEZING [None]
